FAERS Safety Report 21097912 (Version 1)
Quarter: 2022Q3

REPORT INFORMATION
  Report Type: Spontaneous
  Country: US (occurrence: US)
  Receive Date: 20220719
  Receipt Date: 20220719
  Transmission Date: 20221026
  Serious: Yes (Hospitalization)
  Sender: FDA-Public Use
  Company Number: US-SA-SAC20220718000328

PATIENT
  Age: 73 Year
  Sex: Female
  Weight: 93 kg

DRUGS (6)
  1. AMBIEN [Suspect]
     Active Substance: ZOLPIDEM TARTRATE
     Indication: Product used for unknown indication
     Dosage: UNK
     Route: 065
  2. REMODULIN [Suspect]
     Active Substance: TREPROSTINIL
     Indication: Pulmonary arterial hypertension
     Dosage: 0.010 UG/KG
     Route: 041
     Dates: start: 202205
  3. REMODULIN [Suspect]
     Active Substance: TREPROSTINIL
     Dosage: 0.020 UG/KG
     Dates: start: 2022
  4. SILDENAFIL [Concomitant]
     Active Substance: SILDENAFIL
     Dosage: UNK
  5. OFEV [Concomitant]
     Active Substance: NINTEDANIB
     Dosage: UNK
  6. XARELTO [Concomitant]
     Active Substance: RIVAROXABAN
     Dosage: UNK

REACTIONS (14)
  - Blood glucose decreased [Unknown]
  - Decreased appetite [Unknown]
  - Fall [Unknown]
  - Urinary tract disorder [Unknown]
  - Feeling hot [Unknown]
  - Pain [Unknown]
  - Early satiety [Unknown]
  - Weight decreased [Unknown]
  - Gait disturbance [Unknown]
  - Confusional state [Unknown]
  - Nausea [Unknown]
  - Dizziness [Unknown]
  - Headache [Unknown]
  - Embedded device [Unknown]

NARRATIVE: CASE EVENT DATE: 20220501
